FAERS Safety Report 6981268-4 (Version None)
Quarter: 2010Q3

REPORT INFORMATION
  Report Type: 
  Country: None (occurrence: None)
  Receive Date: 20100914
  Receipt Date: 20100906
  Transmission Date: 20110219
  Serious: Yes (Life-Threatening, Hospitalization)
  Sender: FDA-Public Use
  Company Number: FR-AMGEN-KDC436208

PATIENT
  Sex: Female

DRUGS (5)
  1. VECTIBIX [Suspect]
     Indication: BREAST CANCER
     Route: 042
     Dates: start: 20100628
  2. ENDOXAN [Suspect]
     Route: 042
     Dates: start: 20100628
  3. FLUOROURACIL [Suspect]
     Route: 042
     Dates: start: 20100628
  4. EPIRUBICIN HYDROCHLORIDE [Suspect]
     Route: 042
     Dates: start: 20100628
  5. DOXYCYCLINE [Concomitant]
     Dates: start: 20100628, end: 20100723

REACTIONS (3)
  - CYTOLYTIC HEPATITIS [None]
  - SEPSIS [None]
  - STOMATITIS [None]
